FAERS Safety Report 23426779 (Version 1)
Quarter: 2024Q1

REPORT INFORMATION
  Report Type: Spontaneous
  Country: US (occurrence: US)
  Receive Date: 20240122
  Receipt Date: 20240122
  Transmission Date: 20240410
  Serious: Yes (Hospitalization, Other)
  Sender: FDA-Public Use
  Company Number: US-ULTRAGENYX PHARMACEUTICAL INC.-US-UGX-24-00068

PATIENT
  Sex: Female

DRUGS (2)
  1. DOJOLVI [Suspect]
     Active Substance: TRIHEPTANOIN
     Indication: Fatty acid oxidation disorder
     Dosage: 15 MILLILITER, FIVE TIMES DAILY
     Route: 048
     Dates: start: 202008
  2. DOJOLVI [Suspect]
     Active Substance: TRIHEPTANOIN
     Dosage: 15 MILLILITER, FIVE TIMES DAILY
     Route: 048

REACTIONS (8)
  - Spinal operation [Unknown]
  - Oedema [Unknown]
  - Pulmonary oedema [Unknown]
  - Cardiac failure congestive [Unknown]
  - Underdose [Unknown]
  - Nausea [Unknown]
  - Vomiting [Unknown]
  - Diarrhoea [Unknown]
